FAERS Safety Report 20955466 (Version 6)
Quarter: 2022Q3

REPORT INFORMATION
  Report Type: Spontaneous
  Country: FR (occurrence: FR)
  Receive Date: 20220614
  Receipt Date: 20220722
  Transmission Date: 20221027
  Serious: Yes (Other)
  Sender: FDA-Public Use
  Company Number: FR-INCYTE CORPORATION-2022IN004716

PATIENT

DRUGS (4)
  1. TAFASITAMAB [Suspect]
     Active Substance: TAFASITAMAB
     Indication: Diffuse large B-cell lymphoma
     Dosage: 680 UNK
     Route: 065
     Dates: end: 20220511
  2. LENALIDOMIDE [Concomitant]
     Active Substance: LENALIDOMIDE
     Indication: Non-Hodgkin^s lymphoma
     Dosage: UNK
     Route: 065
     Dates: start: 20220308
  3. BACTRIM [Concomitant]
     Active Substance: SULFAMETHOXAZOLE\TRIMETHOPRIM
     Indication: Prophylaxis
     Dosage: UNK
     Route: 065
  4. VALACYCLOVIR HYDROCHLORIDE [Concomitant]
     Active Substance: VALACYCLOVIR HYDROCHLORIDE
     Indication: Prophylaxis
     Dosage: 680 UNK
     Route: 065
     Dates: end: 20220511

REACTIONS (9)
  - Diffuse large B-cell lymphoma [Unknown]
  - Terminal state [Unknown]
  - Failure to thrive [Unknown]
  - Blood disorder [Unknown]
  - Fatigue [Unknown]
  - Mental disorder [Unknown]
  - General physical health deterioration [Unknown]
  - Disease progression [Unknown]
  - Drug ineffective [Unknown]
